FAERS Safety Report 7454363-3 (Version None)
Quarter: 2011Q2

REPORT INFORMATION
  Report Type: 
  Country: None (occurrence: None)
  Receive Date: 20110503
  Receipt Date: 20110428
  Transmission Date: 20111010
  Serious: Yes (Other)
  Sender: FDA-Public Use
  Company Number: US-JNJFOC-20110412581

PATIENT
  Age: 47 Year
  Sex: Female
  Weight: 103.42 kg

DRUGS (3)
  1. INVEGA SUSTENNA [Suspect]
     Indication: SCHIZOPHRENIA
     Route: 030
  2. LITHIUM CARBONATE [Concomitant]
  3. CYMBALTA [Concomitant]

REACTIONS (3)
  - WEIGHT INCREASED [None]
  - PRODUCT QUALITY ISSUE [None]
  - INAPPROPRIATE SCHEDULE OF DRUG ADMINISTRATION [None]
